FAERS Safety Report 9782368 (Version 1)
Quarter: 2013Q4

REPORT INFORMATION
  Report Type: Report from Study
  Country: CA (occurrence: CA)
  Receive Date: 20131226
  Receipt Date: 20131226
  Transmission Date: 20140711
  Serious: Yes (Death)
  Sender: FDA-Public Use
  Company Number: PHHY2013CA148066

PATIENT
  Sex: Female

DRUGS (2)
  1. SANDOSTATIN [Suspect]
     Indication: COLON CANCER METASTATIC
     Dosage: 50 UG, TID
     Route: 058
     Dates: start: 20131117
  2. SANDOSTATIN [Suspect]
     Indication: MALIGNANT PERITONEAL NEOPLASM

REACTIONS (1)
  - Death [Fatal]
